FAERS Safety Report 5713452-1 (Version None)
Quarter: 2008Q2

REPORT INFORMATION
  Report Type: 
  Country: None (occurrence: None)
  Receive Date: 20080422
  Receipt Date: 20080327
  Transmission Date: 20081010
  Serious: No
  Sender: FDA-Public Use
  Company Number: US-BOEHRINGER INGELHEIM GMBH, GERMANY-2008-BP-04751BP

PATIENT
  Age: 60 Year
  Sex: Female

DRUGS (3)
  1. MICARDIS [Suspect]
     Indication: HYPERTENSION
     Route: 048
     Dates: start: 20070101, end: 20070101
  2. TAPAZOLE [Concomitant]
  3. OXAPAN [Concomitant]

REACTIONS (1)
  - BLOOD PRESSURE INCREASED [None]
